FAERS Safety Report 22636845 (Version 1)
Quarter: 2023Q2

REPORT INFORMATION
  Report Type: Spontaneous
  Country: FR (occurrence: FR)
  Receive Date: 20230626
  Receipt Date: 20230626
  Transmission Date: 20230721
  Serious: Yes (Hospitalization)
  Sender: FDA-Public Use
  Company Number: None

PATIENT
  Age: 48 Year
  Sex: Male
  Weight: 66 kg

DRUGS (9)
  1. FLUOROURACIL [Suspect]
     Active Substance: FLUOROURACIL
     Indication: Adenocarcinoma gastric
     Dosage: 50 MG/ML, SOLUTION FOR INFUSION
     Dates: start: 20230419, end: 20230419
  2. OXALIPLATIN [Concomitant]
     Active Substance: OXALIPLATIN
     Indication: Adenocarcinoma
     Dosage: ABOUT 2H
     Dates: start: 20230419, end: 20230419
  3. EMEND [Concomitant]
     Active Substance: APREPITANT
     Indication: Chemotherapy side effect prophylaxis
     Dosage: 125 MG, CAPSULE
     Dates: start: 20230419, end: 20230419
  4. LEUCOVORIN CALCIUM [Concomitant]
     Active Substance: LEUCOVORIN CALCIUM
     Indication: Adenocarcinoma
     Dosage: 200 MG, LYOPHILISATE FOR PARENTERAL USE IN VIAL
     Dates: start: 20230419, end: 20230419
  5. MAGNESIUM SULFATE [Concomitant]
     Active Substance: MAGNESIUM SULFATE
     Indication: Adenocarcinoma
     Dosage: RENAUDIN 10%, SOLUTION FOR INJECTION (IV)?ABOUT 15 MIN COMBINED WITH CALCIUM FOLINATE
     Dates: start: 20230419, end: 20230419
  6. ONDANSETRON [Concomitant]
     Active Substance: ONDANSETRON
     Indication: Chemotherapy side effect prophylaxis
     Dosage: 8 MG/4 ML, SOLUTION FOR INJECTION IN PRE-FILLED SYRINGE
     Dates: start: 20230419, end: 20230419
  7. NIVOLUMAB [Concomitant]
     Active Substance: NIVOLUMAB
     Indication: Adenocarcinoma gastric
     Dosage: 10 MG/ML CONCENTRATE FOR SOLUTION FOR INFUSION?OVER 30 MINS
     Dates: start: 20230419, end: 20230419
  8. CALCIUM GLUCONATE [Concomitant]
     Active Substance: CALCIUM GLUCONATE
     Indication: Adenocarcinoma
     Dosage: 10 PERCENT AGUETTANT, SOLUTION FOR INJECTION IN AMPOULE
     Dates: start: 20230419, end: 20230419
  9. FLUOROURACIL [Suspect]
     Active Substance: FLUOROURACIL
     Indication: Adenocarcinoma gastric
     Dosage: 50 MG/ML, SOLUTION FOR INFUSION?OVER 48 HOURS
     Dates: start: 20230419, end: 20230419

REACTIONS (1)
  - Pruritus [Recovered/Resolved]

NARRATIVE: CASE EVENT DATE: 20230419
